FAERS Safety Report 10649225 (Version 1)
Quarter: 2014Q4

REPORT INFORMATION
  Report Type: Spontaneous
  Country: US (occurrence: None)
  Receive Date: 20141211
  Receipt Date: 20141211
  Transmission Date: 20150529
  Serious: Yes (Other)
  Sender: FDA-Public Use
  Company Number: None

PATIENT
  Sex: Male

DRUGS (11)
  1. TAMSULOSIN [Concomitant]
     Active Substance: TAMSULOSIN
  2. IMBRUVICA [Suspect]
     Active Substance: IBRUTINIB
     Indication: MANTLE CELL LYMPHOMA
     Route: 048
     Dates: start: 20140821, end: 20141111
  3. IMBRUVICA [Suspect]
     Active Substance: IBRUTINIB
     Indication: LYMPHOMA
     Route: 048
     Dates: start: 20140821, end: 20141111
  4. ONDANSETRON [Concomitant]
     Active Substance: ONDANSETRON
  5. ALLOPURINOL. [Concomitant]
     Active Substance: ALLOPURINOL
  6. FINASTERIDE. [Concomitant]
     Active Substance: FINASTERIDE
  7. DOCUSATE [Concomitant]
     Active Substance: DOCUSATE
  8. VITAMIN D [Concomitant]
     Active Substance: CHOLECALCIFEROL
  9. DEXAMETHASONE. [Concomitant]
     Active Substance: DEXAMETHASONE
  10. ASPIRIN. [Concomitant]
     Active Substance: ASPIRIN
  11. LISINOPRIL. [Concomitant]
     Active Substance: LISINOPRIL

REACTIONS (1)
  - Atrial fibrillation [None]
